FAERS Safety Report 5047248-3 (Version None)
Quarter: 2006Q3

REPORT INFORMATION
  Report Type: 
  Country: None (occurrence: None)
  Receive Date: 20060703
  Receipt Date: 20060619
  Transmission Date: 20061208
  Serious: Yes (Other)
  Sender: FDA-Public Use
  Company Number: 2006RL000205

PATIENT
  Sex: Male

DRUGS (10)
  1. PROPAFENONE HCL [Suspect]
     Indication: ATRIAL FLUTTER
     Dosage: 150 MG; TID
     Dates: start: 20060101
  2. AMIODARONE (AMIODARONE) [Suspect]
     Indication: ATRIAL FLUTTER
     Dosage: LOADING DOSE (NOS); PO;  200 MG; QD; PO
     Route: 048
     Dates: end: 20060501
  3. AMIODARONE (AMIODARONE) [Suspect]
     Indication: ATRIAL FLUTTER
     Dosage: LOADING DOSE (NOS); PO;  200 MG; QD; PO
     Route: 048
     Dates: start: 20060201
  4. WARFARIN SODIUM [Suspect]
     Dosage: 5 TO 6 MG DAILY; 3 TO 4 MG DAILY;  4 MG; QD
     Dates: start: 20010101
  5. WARFARIN SODIUM [Suspect]
     Dosage: 5 TO 6 MG DAILY; 3 TO 4 MG DAILY;  4 MG; QD
     Dates: start: 20060201
  6. WARFARIN SODIUM [Suspect]
     Dosage: 5 TO 6 MG DAILY; 3 TO 4 MG DAILY;  4 MG; QD
     Dates: start: 20060501
  7. DIGOXIN [Concomitant]
  8. ATORVASTATIN CALCIUM [Concomitant]
  9. CANDESARTAN [Concomitant]
  10. THYROXINE SODIUM [Concomitant]

REACTIONS (4)
  - ATRIAL FLUTTER [None]
  - DRUG INTERACTION [None]
  - HYPOTHYROIDISM [None]
  - INTERNATIONAL NORMALISED RATIO INCREASED [None]
